FAERS Safety Report 20249637 (Version 1)
Quarter: 2021Q4

REPORT INFORMATION
  Report Type: Spontaneous
  Country: DE (occurrence: DE)
  Receive Date: 20211229
  Receipt Date: 20211229
  Transmission Date: 20220303
  Serious: Yes (Hospitalization)
  Sender: FDA-Public Use
  Company Number: DE-ADRED-07648-01

PATIENT
  Age: 70 Year
  Sex: Male

DRUGS (13)
  1. EPLERENONE [Suspect]
     Active Substance: EPLERENONE
     Dosage: 25 MILLIGRAM DAILY; 1-0-0-0
     Route: 065
  2. METFORMIN [Suspect]
     Active Substance: METFORMIN HYDROCHLORIDE
     Dosage: 1000 MILLIGRAM DAILY; 1-0-1-0
     Route: 065
  3. CITRIC ACID MONOHYDRATE\POTASSIUM BICARBONATE\POTASSIUM CITRATE [Suspect]
     Active Substance: CITRIC ACID MONOHYDRATE\POTASSIUM BICARBONATE\POTASSIUM CITRATE
     Dosage: 1 DOSAGE FORMS DAILY; 1-0-0-0
     Route: 065
  4. XIPAMIDE [Concomitant]
     Active Substance: XIPAMIDE
     Dosage: .5 DOSAGE FORMS DAILY; 10 MG, 0.5-0-0-0
  5. SITAGLIPTIN [Concomitant]
     Active Substance: SITAGLIPTIN
     Dosage: 50 MILLIGRAM DAILY; 1-0-0-0
  6. LEVOTHYROXINE SODIUM [Concomitant]
     Active Substance: LEVOTHYROXINE SODIUM
     Dosage: 125 MICROGRAM DAILY; 1-0-0-0
  7. BISOPROLOL [Concomitant]
     Active Substance: BISOPROLOL
     Dosage: 5 MILLIGRAM DAILY; 1-0-1-0
  8. TORSEMIDE [Concomitant]
     Active Substance: TORSEMIDE
     Dosage: 10 MG, 1-0.5-0-0
  9. ATORVASTATIN [Concomitant]
     Active Substance: ATORVASTATIN
     Dosage: 40 MILLIGRAM DAILY;  0-0-1-0
  10. ALLOPURINOL [Concomitant]
     Active Substance: ALLOPURINOL
     Dosage: 100 MILLIGRAM DAILY; 1-0-0-0
  11. SACUBITRIL\VALSARTAN [Concomitant]
     Active Substance: SACUBITRIL\VALSARTAN
     Dosage: 1 DOSAGE FORMS DAILY; 24|26 MG, 1-0-0-0
  12. EZETIMIBE [Concomitant]
     Active Substance: EZETIMIBE
     Dosage: 10 MILLIGRAM DAILY; 1-0-0-0
  13. EDOXABAN [Concomitant]
     Active Substance: EDOXABAN
     Dosage: 30 MILLIGRAM DAILY; 1-0-0-0

REACTIONS (11)
  - Tachycardia [Unknown]
  - Hypotension [Unknown]
  - Weight increased [Unknown]
  - Renal impairment [Unknown]
  - Fall [Unknown]
  - Loss of consciousness [Unknown]
  - Electrocardiogram abnormal [Unknown]
  - Apnoea [Unknown]
  - General physical health deterioration [Unknown]
  - Dyspnoea [Unknown]
  - Cardiac arrest [Unknown]
